FAERS Safety Report 4636486-7 (Version None)
Quarter: 2005Q2

REPORT INFORMATION
  Report Type: 
  Country: None (occurrence: None)
  Receive Date: 20050414
  Receipt Date: 20050414
  Transmission Date: 20051028
  Serious: No
  Sender: FDA-Public Use
  Company Number: None

PATIENT
  Sex: Female
  Weight: 58 kg

DRUGS (2)
  1. CYTOXAN [Suspect]
     Dosage: 600 MG/M2 IV EVERY 2 WEEKS
     Route: 042
     Dates: start: 20041028
  2. ADRIAMYCIN PFS [Suspect]
     Dosage: 60 MG/M2 IV EVERY 2 WEEKS FOR 6 CYCLES
     Route: 042
     Dates: start: 20041028

REACTIONS (2)
  - CARDIAC FAILURE CONGESTIVE [None]
  - FLUID OVERLOAD [None]
